FAERS Safety Report 6795067-X (Version None)
Quarter: 2010Q2

REPORT INFORMATION
  Report Type: 
  Country: None (occurrence: None)
  Receive Date: 20100625
  Receipt Date: 20100622
  Transmission Date: 20101027
  Serious: Yes (Death)
  Sender: FDA-Public Use
  Company Number: US-SANOFI-AVENTIS-2010SA036276

PATIENT
  Age: 46 Year
  Sex: Female

DRUGS (8)
  1. MULTAQ [Suspect]
     Indication: ATRIAL FIBRILLATION
     Route: 048
  2. LOPRESSOR [Concomitant]
  3. THYROID THERAPY [Concomitant]
  4. COUMADIN [Concomitant]
     Dosage: EVERY 48 HOURS
  5. TYLENOL [Concomitant]
  6. MOTRIN [Concomitant]
  7. METFORMIN HCL [Concomitant]
     Route: 065
  8. LOVENOX [Concomitant]
     Route: 058

REACTIONS (2)
  - FATIGUE [None]
  - VENTRICULAR FIBRILLATION [None]
